FAERS Safety Report 12524662 (Version 1)
Quarter: 2016Q3

REPORT INFORMATION
  Report Type: Spontaneous
  Country: JP (occurrence: JP)
  Receive Date: 20160704
  Receipt Date: 20160704
  Transmission Date: 20161109
  Serious: Yes (Other)
  Sender: FDA-Public Use
  Company Number: JP-JNJFOC-20160700814

PATIENT
  Age: 80 Year
  Sex: Female
  Weight: 69 kg

DRUGS (8)
  1. LENDORMIN [Concomitant]
     Active Substance: BROTIZOLAM
     Route: 048
  2. CANAGLU [Suspect]
     Active Substance: CANAGLIFLOZIN
     Indication: TYPE 2 DIABETES MELLITUS
     Route: 048
     Dates: start: 20160203, end: 20160302
  3. MICARDIS [Concomitant]
     Active Substance: TELMISARTAN
     Dosage: DRUG START DATE- BEFORE 2009
     Route: 048
  4. ACETANOL [Concomitant]
     Dosage: DRUG START DATE- BEFORE 2009
     Route: 048
  5. GLACTIV [Concomitant]
     Active Substance: SITAGLIPTIN
     Indication: TYPE 2 DIABETES MELLITUS
     Route: 048
     Dates: start: 20160420
  6. CANAGLU [Suspect]
     Active Substance: CANAGLIFLOZIN
     Indication: TYPE 2 DIABETES MELLITUS
     Route: 048
     Dates: start: 20151007, end: 20160203
  7. ADALAT [Concomitant]
     Active Substance: NIFEDIPINE
     Dosage: DRUG START DATE- BEFORE 2009
     Route: 048
  8. GLACTIV [Concomitant]
     Active Substance: SITAGLIPTIN
     Indication: TYPE 2 DIABETES MELLITUS
     Dosage: DRUG START DATE- BEFORE STARTING CANAGLIFLOZIN
     Route: 048
     Dates: end: 20160420

REACTIONS (4)
  - Malaise [Recovering/Resolving]
  - Off label use [Unknown]
  - Weight decreased [Recovering/Resolving]
  - Drug prescribing error [Unknown]

NARRATIVE: CASE EVENT DATE: 20160203
